FAERS Safety Report 25396377 (Version 2)
Quarter: 2025Q3

REPORT INFORMATION
  Report Type: Spontaneous
  Country: EU (occurrence: EU)
  Receive Date: 20250604
  Receipt Date: 20250722
  Transmission Date: 20251021
  Serious: Yes (Life-Threatening, Hospitalization)
  Sender: MYLAN
  Company Number: None

PATIENT
  Age: 83 Year
  Sex: Male
  Weight: 88.7 kg

DRUGS (16)
  1. MOXIFLOXACIN [Suspect]
     Active Substance: MOXIFLOXACIN
     Indication: Mycobacterium ulcerans infection
     Dosage: 400 MILLIGRAM, QD (1-0-0)
     Dates: start: 20250412, end: 20250427
  2. MOXIFLOXACIN [Suspect]
     Active Substance: MOXIFLOXACIN
     Dosage: 400 MILLIGRAM, QD (1-0-0)
     Route: 048
     Dates: start: 20250412, end: 20250427
  3. MOXIFLOXACIN [Suspect]
     Active Substance: MOXIFLOXACIN
     Dosage: 400 MILLIGRAM, QD (1-0-0)
     Route: 048
     Dates: start: 20250412, end: 20250427
  4. MOXIFLOXACIN [Suspect]
     Active Substance: MOXIFLOXACIN
     Dosage: 400 MILLIGRAM, QD (1-0-0)
     Dates: start: 20250412, end: 20250427
  5. CLARITHROMYCIN [Suspect]
     Active Substance: CLARITHROMYCIN
     Indication: Mycobacterium ulcerans infection
     Dosage: 1000 MILLIGRAM, QD (500 MG 1-0-1)
     Dates: start: 20250412, end: 20250427
  6. CLARITHROMYCIN [Suspect]
     Active Substance: CLARITHROMYCIN
     Dosage: 1000 MILLIGRAM, QD (500 MG 1-0-1)
     Route: 048
     Dates: start: 20250412, end: 20250427
  7. CLARITHROMYCIN [Suspect]
     Active Substance: CLARITHROMYCIN
     Dosage: 1000 MILLIGRAM, QD (500 MG 1-0-1)
     Route: 048
     Dates: start: 20250412, end: 20250427
  8. CLARITHROMYCIN [Suspect]
     Active Substance: CLARITHROMYCIN
     Dosage: 1000 MILLIGRAM, QD (500 MG 1-0-1)
     Dates: start: 20250412, end: 20250427
  9. RIFAMPIN [Suspect]
     Active Substance: RIFAMPIN
     Indication: Mycobacterium ulcerans infection
     Dosage: 700 MILLIGRAM, QD (300 MG 2-1-0)
     Dates: start: 202409, end: 20241210
  10. RIFAMPIN [Suspect]
     Active Substance: RIFAMPIN
     Dosage: 700 MILLIGRAM, QD (300 MG 2-1-0)
     Dates: start: 202409, end: 20241210
  11. RIFAMPIN [Suspect]
     Active Substance: RIFAMPIN
     Dosage: 700 MILLIGRAM, QD (300 MG 2-1-0)
     Route: 048
     Dates: start: 202409, end: 20241210
  12. RIFAMPIN [Suspect]
     Active Substance: RIFAMPIN
     Dosage: 700 MILLIGRAM, QD (300 MG 2-1-0)
     Route: 048
     Dates: start: 202409, end: 20241210
  13. RIFAMPIN [Suspect]
     Active Substance: RIFAMPIN
     Dosage: 700 MILLIGRAM, QD (300 MG 2-1-0)
     Dates: start: 20250412, end: 20250427
  14. RIFAMPIN [Suspect]
     Active Substance: RIFAMPIN
     Dosage: 700 MILLIGRAM, QD (300 MG 2-1-0)
     Dates: start: 20250412, end: 20250427
  15. RIFAMPIN [Suspect]
     Active Substance: RIFAMPIN
     Dosage: 700 MILLIGRAM, QD (300 MG 2-1-0)
     Route: 048
     Dates: start: 20250412, end: 20250427
  16. RIFAMPIN [Suspect]
     Active Substance: RIFAMPIN
     Dosage: 700 MILLIGRAM, QD (300 MG 2-1-0)
     Route: 048
     Dates: start: 20250412, end: 20250427

REACTIONS (2)
  - Drug reaction with eosinophilia and systemic symptoms [Recovered/Resolved]
  - Purpura [Recovering/Resolving]

NARRATIVE: CASE EVENT DATE: 20250425
